FAERS Safety Report 5995877-2 (Version None)
Quarter: 2008Q4

REPORT INFORMATION
  Report Type: 
  Country: None (occurrence: None)
  Receive Date: 20081212
  Receipt Date: 20081203
  Transmission Date: 20090506
  Serious: Yes (Hospitalization)
  Sender: FDA-Public Use
  Company Number: JP-AMGEN-US314411

PATIENT
  Age: 66 Year
  Sex: Female
  Weight: 34 kg

DRUGS (7)
  1. ENBREL [Suspect]
     Indication: RHEUMATOID ARTHRITIS
     Route: 058
     Dates: start: 20080111, end: 20080901
  2. PREDNISOLONE [Concomitant]
     Route: 048
  3. CALBLOCK [Concomitant]
     Route: 048
  4. PROGRAF [Concomitant]
     Route: 048
     Dates: start: 20060601
  5. ATELEC [Concomitant]
     Route: 048
  6. FAMOTIDINE [Concomitant]
     Route: 048
  7. MICARDIS [Concomitant]
     Route: 048

REACTIONS (3)
  - ORAL PRURITUS [None]
  - PRURITUS [None]
  - RASH [None]
